FAERS Safety Report 17239896 (Version 2)
Quarter: 2025Q3

REPORT INFORMATION
  Report Type: Spontaneous
  Country: GB (occurrence: GB)
  Receive Date: 20200106
  Receipt Date: 20250709
  Transmission Date: 20251020
  Serious: Yes (Other)
  Sender: AUROBINDO
  Company Number: GB-ABBOTT-2019A-1314863

PATIENT
  Age: 62 Year
  Sex: Female

DRUGS (21)
  1. CIPROFLOXACIN [Suspect]
     Active Substance: CIPROFLOXACIN
     Indication: Osteoarthritis
     Route: 065
  2. CIPROFLOXACIN [Suspect]
     Active Substance: CIPROFLOXACIN
     Indication: Arthralgia
  3. IBUPROFEN [Suspect]
     Active Substance: IBUPROFEN
     Indication: Arthralgia
     Route: 065
  4. IBUPROFEN [Suspect]
     Active Substance: IBUPROFEN
     Indication: Osteoarthritis
  5. ACETAMINOPHEN [Suspect]
     Active Substance: ACETAMINOPHEN
     Indication: Osteoarthritis
     Route: 065
  6. ACETAMINOPHEN [Suspect]
     Active Substance: ACETAMINOPHEN
     Indication: Arthralgia
  7. DICLOFENAC [Suspect]
     Active Substance: DICLOFENAC
     Indication: Arthralgia
     Route: 065
  8. DICLOFENAC [Suspect]
     Active Substance: DICLOFENAC
     Indication: Osteoarthritis
  9. DEXAMETHASONE [Suspect]
     Active Substance: DEXAMETHASONE
     Indication: Osteoarthritis
     Route: 065
  10. DEXAMETHASONE [Suspect]
     Active Substance: DEXAMETHASONE
     Indication: Arthralgia
  11. CIMETIDINE [Suspect]
     Active Substance: CIMETIDINE
     Indication: Arthralgia
     Route: 065
  12. CIMETIDINE [Suspect]
     Active Substance: CIMETIDINE
     Indication: Osteoarthritis
  13. RAMIPRIL [Suspect]
     Active Substance: RAMIPRIL
     Indication: Product used for unknown indication
     Dosage: 10 MILLIGRAM, ONCE A DAY
     Route: 065
  14. AMLODIPINE [Suspect]
     Active Substance: AMLODIPINE BESYLATE
     Indication: Product used for unknown indication
     Dosage: 10 MILLIGRAM, ONCE A DAY
     Route: 065
  15. ASPIRIN [Suspect]
     Active Substance: ASPIRIN
     Indication: Product used for unknown indication
     Dosage: 75 MILLIGRAM, ONCE A DAY
     Route: 065
  16. TOPIRAMATE [Suspect]
     Active Substance: TOPIRAMATE
     Indication: Product used for unknown indication
     Dosage: 25 MILLIGRAM, ONCE A DAY
     Route: 065
  17. PAROXETINE [Suspect]
     Active Substance: PAROXETINE
     Indication: Product used for unknown indication
     Dosage: 50 MILLIGRAM, ONCE A DAY
     Route: 065
  18. SIMVASTATIN [Suspect]
     Active Substance: SIMVASTATIN
     Indication: Product used for unknown indication
     Dosage: 20 MILLIGRAM, ONCE A DAY
     Route: 065
  19. METFORMIN [Suspect]
     Active Substance: METFORMIN HYDROCHLORIDE
     Indication: Product used for unknown indication
     Dosage: 500 MILLIGRAM, TWO TIMES A DAY
     Route: 065
  20. PREGABALIN [Suspect]
     Active Substance: PREGABALIN
     Indication: Product used for unknown indication
     Dosage: 50 MILLIGRAM, TWO TIMES A DAY
     Route: 065
  21. CALCIUM CARBONATE\CHOLECALCIFEROL [Suspect]
     Active Substance: CALCIUM CARBONATE\CHOLECALCIFEROL
     Indication: Product used for unknown indication
     Dosage: 2 DOSAGE FORM, ONCE A DAY
     Route: 065

REACTIONS (1)
  - Secondary adrenocortical insufficiency [Unknown]
